FAERS Safety Report 11587962 (Version 9)
Quarter: 2017Q2

REPORT INFORMATION
  Report Type: Report from Study
  Country: CA (occurrence: CA)
  Receive Date: 20151002
  Receipt Date: 20170408
  Transmission Date: 20170829
  Serious: Yes (Life-Threatening, Hospitalization, Disabling, Other)
  Sender: FDA-Public Use
  Company Number: CA-ROCHE-1507036

PATIENT
  Age: 9 Year
  Sex: Male
  Weight: 40 kg

DRUGS (6)
  1. CANAKINUMAB [Concomitant]
     Active Substance: CANAKINUMAB
     Dosage: LAST DOSE WAS 31/MAY/2014
     Route: 065
  2. ACTEMRA [Suspect]
     Active Substance: TOCILIZUMAB
     Indication: JUVENILE IDIOPATHIC ARTHRITIS
     Route: 042
     Dates: start: 20140721
  3. ACTEMRA [Suspect]
     Active Substance: TOCILIZUMAB
     Route: 042
     Dates: start: 20161201
  4. PREDNISONE. [Suspect]
     Active Substance: PREDNISONE
     Indication: JUVENILE IDIOPATHIC ARTHRITIS
     Route: 048
  5. PREDNISONE. [Suspect]
     Active Substance: PREDNISONE
     Route: 048
     Dates: start: 20130415
  6. PREVACID [Concomitant]
     Active Substance: LANSOPRAZOLE

REACTIONS (11)
  - Optic nerve injury [Unknown]
  - Blindness [Not Recovered/Not Resolved]
  - Optic neuritis [Not Recovered/Not Resolved]
  - Abdominal pain [Not Recovered/Not Resolved]
  - Juvenile idiopathic arthritis [Recovering/Resolving]
  - Poor venous access [Unknown]
  - Vomiting [Unknown]
  - Eye disorder [Unknown]
  - Intracranial pressure increased [Unknown]
  - Intracranial pressure increased [Unknown]
  - Blindness [Unknown]

NARRATIVE: CASE EVENT DATE: 20150923
